FAERS Safety Report 8855203 (Version 1)
Quarter: 2012Q4

REPORT INFORMATION
  Report Type: 
  Country: US (occurrence: US)
  Receive Date: 20121023
  Receipt Date: 20121023
  Transmission Date: 20130627
  Serious: No
  Sender: FDA-Public Use
  Company Number: US-AMGEN-USASP2012059962

PATIENT
  Sex: Female

DRUGS (9)
  1. ENBREL [Suspect]
     Indication: ANKYLOSING SPONDYLITIS
     Dosage: 50 mg/ml, qwk
  2. CALTRATE + D                       /07511201/ [Concomitant]
     Dosage: UNK
  3. MULTIVITAMIN                       /00097801/ [Concomitant]
     Dosage: UNK
  4. IRON [Concomitant]
     Dosage: 50 mg, UNK
  5. EFFEXOR [Concomitant]
     Dosage: 25 mg, UNK
  6. DAYPRO [Concomitant]
     Dosage: 600 mg, UNK
  7. TYLENOL /00020001/ [Concomitant]
     Dosage: 500 mg EZ, UNK
  8. ZYRTEC [Concomitant]
     Dosage: 5 mg, UNK
  9. SINUS RINSE [Concomitant]
     Dosage: POW

REACTIONS (3)
  - Injection site discolouration [Unknown]
  - Injection site pruritus [Unknown]
  - Injection site pain [Unknown]
